FAERS Safety Report 17576046 (Version 1)
Quarter: 2020Q1

REPORT INFORMATION
  Report Type: Report from Study
  Country: FR (occurrence: FR)
  Receive Date: 20200324
  Receipt Date: 20200324
  Transmission Date: 20200409
  Serious: Yes (Other)
  Sender: FDA-Public Use
  Company Number: FR-RECORDATI RARE DISEASES-2081917

PATIENT
  Age: 56 Year
  Sex: Male

DRUGS (7)
  1. SIGNIFOR LAR [Suspect]
     Active Substance: PASIREOTIDE PAMOATE
     Indication: ACROMEGALY
     Route: 030
     Dates: start: 20180418
  2. THERALITE [Concomitant]
     Active Substance: LITHIUM CARBONATE
     Dates: start: 20180320
  3. XARELTO [Concomitant]
     Active Substance: RIVAROXABAN
     Dates: start: 20180320
  4. XEROQUEL [Concomitant]
     Active Substance: QUETIAPINE FUMARATE
     Dates: start: 20180320
  5. DEPAMIDE [Concomitant]
     Active Substance: VALPROMIDE
     Dates: start: 20180320
  6. HYDROCORTISONE. [Concomitant]
     Active Substance: HYDROCORTISONE
     Dates: start: 20180317, end: 20180626
  7. LITHIUM. [Concomitant]
     Active Substance: LITHIUM

REACTIONS (2)
  - Hypoglycaemia [Recovered/Resolved]
  - Type 2 diabetes mellitus [Not Recovered/Not Resolved]

NARRATIVE: CASE EVENT DATE: 20180612
